FAERS Safety Report 8257521-3 (Version None)
Quarter: 2012Q2

REPORT INFORMATION
  Report Type: 
  Country: None (occurrence: None)
  Receive Date: 20120403
  Receipt Date: 20120319
  Transmission Date: 20120825
  Serious: Yes (Other)
  Sender: FDA-Public Use
  Company Number: US-WATSON-2012-04782

PATIENT
  Sex: Male
  Weight: 58.957 kg

DRUGS (4)
  1. STRATTERA [Concomitant]
     Indication: ANXIETY
     Dosage: 60 MG DAILY
     Route: 048
     Dates: start: 20110820, end: 20110919
  2. MINOCYCLINE HCL [Suspect]
     Indication: ACNE
     Dosage: PRESCRIBED TO TAKE ONE CAPSULE BID, HOWEVER TOOK ONE CAPSULE DAILY
     Route: 048
     Dates: start: 20110810, end: 20120215
  3. ZOLOFT [Concomitant]
     Indication: ANXIETY
     Dosage: ^LOW DOSE,^ DAILY
     Route: 048
     Dates: start: 20120105
  4. STRATTERA [Concomitant]
     Dosage: 40 MG DAILY
     Route: 048
     Dates: start: 20110810, end: 20110819

REACTIONS (8)
  - FALL [None]
  - LOSS OF CONSCIOUSNESS [None]
  - VISUAL IMPAIRMENT [None]
  - DIZZINESS [None]
  - HEAD INJURY [None]
  - INFECTIOUS MONONUCLEOSIS [None]
  - HAEMORRHAGE [None]
  - SYNCOPE [None]
